FAERS Safety Report 5621083-7 (Version None)
Quarter: 2008Q1

REPORT INFORMATION
  Report Type: 
  Country: None (occurrence: None)
  Receive Date: 20080114
  Receipt Date: 20061211
  Transmission Date: 20080703
  Serious: Yes (Disabling)
  Sender: FDA-Public Use
  Company Number: A03200700268

PATIENT
  Age: 84 Year
  Sex: Female

DRUGS (1)
  1. PLAVIX [Suspect]
     Dosage: ORAL
     Route: 048

REACTIONS (1)
  - DYSPNOEA [None]
